FAERS Safety Report 14373579 (Version 2)
Quarter: 2018Q1

REPORT INFORMATION
  Report Type: Not Available
  Country: US (occurrence: CA)
  Receive Date: 20180110
  Receipt Date: 20180209
  Transmission Date: 20180509
  Serious: Yes (Other)
  Sender: FDA-Public Use
  Company Number: US-ANIPHARMA-2017-CA-000593

PATIENT
  Age: 70 Year
  Sex: Female

DRUGS (6)
  1. MICARDIS [Concomitant]
     Active Substance: TELMISARTAN
  2. PLAQUENIL [Concomitant]
     Active Substance: HYDROXYCHLOROQUINE SULFATE
     Dosage: 200 MG DAILY ALTERNATING WITH 400 MG DAILY
  3. XELJANZ [Suspect]
     Active Substance: TOFACITINIB CITRATE
     Dosage: 5 MG TWICE DAILY
     Route: 048
     Dates: start: 20170120
  4. METHOTREXATE SODIUM TABLET [Suspect]
     Active Substance: METHOTREXATE SODIUM
     Dosage: 10 MG WEEKLY
     Route: 048
  5. INDERAL LA [Suspect]
     Active Substance: PROPRANOLOL HYDROCHLORIDE
  6. CELEBREX [Suspect]
     Active Substance: CELECOXIB
     Route: 048

REACTIONS (5)
  - Herpes zoster [Unknown]
  - Pain [Unknown]
  - Hypoaesthesia [Unknown]
  - Pain in extremity [Unknown]
  - Nasopharyngitis [Recovered/Resolved]

NARRATIVE: CASE EVENT DATE: 20171123
